FAERS Safety Report 14336951 (Version 1)
Quarter: 2017Q4

REPORT INFORMATION
  Report Type: Spontaneous
  Country: US (occurrence: US)
  Receive Date: 20171228
  Receipt Date: 20171228
  Transmission Date: 20180321
  Serious: Yes (Other)
  Sender: FDA-Public Use
  Company Number: None

PATIENT
  Age: 39 Year
  Sex: Female
  Weight: 79.38 kg

DRUGS (2)
  1. LEXAPRO [Concomitant]
     Active Substance: ESCITALOPRAM OXALATE
  2. MIRENA [Suspect]
     Active Substance: LEVONORGESTREL
     Dates: start: 20160816, end: 20171222

REACTIONS (6)
  - Suicidal ideation [None]
  - Panic attack [None]
  - Depression [None]
  - Extra dose administered [None]
  - Weight increased [None]
  - Haemorrhage [None]

NARRATIVE: CASE EVENT DATE: 20171225
